FAERS Safety Report 7368902-4 (Version None)
Quarter: 2011Q1

REPORT INFORMATION
  Report Type: 
  Country: None (occurrence: None)
  Receive Date: 20110323
  Receipt Date: 20110208
  Transmission Date: 20110831
  Serious: Yes (Death, Other)
  Sender: FDA-Public Use
  Company Number: US-BAYER-201010463NA

PATIENT
  Sex: Male

DRUGS (1)
  1. TRASYLOL [Suspect]
     Indication: PRODUCT USED FOR UNKNOWN INDICATION
     Route: 042

REACTIONS (11)
  - DEATH [None]
  - INJURY [None]
  - UNEVALUABLE EVENT [None]
  - RENAL FAILURE [None]
  - DEPRESSION [None]
  - MYOCARDIAL INFARCTION [None]
  - FEAR [None]
  - CEREBROVASCULAR ACCIDENT [None]
  - PAIN [None]
  - ANHEDONIA [None]
  - ANXIETY [None]
